FAERS Safety Report 6139535-2 (Version None)
Quarter: 2009Q2

REPORT INFORMATION
  Report Type: 
  Country: None (occurrence: None)
  Receive Date: 20090401
  Receipt Date: 20090317
  Transmission Date: 20091009
  Serious: Yes (Hospitalization, Other)
  Sender: FDA-Public Use
  Company Number: US-PFIZER INC-2008151766

PATIENT
  Sex: Female

DRUGS (31)
  1. DEPO-PROVERA [Suspect]
     Indication: MENOPAUSAL SYMPTOMS
     Dosage: 250 MG, MONTHLY
     Route: 030
     Dates: start: 19900101
  2. CLIMARA [Suspect]
     Indication: MENOPAUSAL SYMPTOMS
     Dosage: UNK
     Route: 062
     Dates: start: 19951006, end: 19970207
  3. ESTRADERM [Suspect]
     Indication: MENOPAUSAL SYMPTOMS
     Dosage: UNK
     Route: 062
     Dates: end: 19951006
  4. PREMPRO [Suspect]
     Indication: MENOPAUSAL SYMPTOMS
     Dosage: UNK
     Dates: start: 19970207, end: 20000101
  5. PREMPRO [Suspect]
     Dosage: UNK
     Route: 048
     Dates: start: 19990628
  6. CYCRIN [Suspect]
     Indication: MENOPAUSAL SYMPTOMS
     Dosage: 5 MG, 1X/DAY
     Dates: start: 19951006, end: 19970207
  7. PAXIL [Concomitant]
     Indication: DEPRESSION
     Dosage: 30 MG, UNK, 40 MG
     Route: 048
     Dates: start: 19960101
  8. PAXIL [Concomitant]
     Indication: ANXIETY
     Dosage: 40 MG, UNK
     Dates: start: 20070601
  9. VIOXX [Concomitant]
     Indication: OSTEOARTHRITIS
     Dosage: 25 MG, 1X/DAY
     Route: 048
     Dates: start: 19900101, end: 19950101
  10. VIOXX [Concomitant]
     Dosage: 25 MG, UNK
     Dates: start: 19990101
  11. EXCEDRIN (MIGRAINE) [Concomitant]
     Indication: MIGRAINE
  12. BEXTRA [Concomitant]
     Indication: OSTEOARTHRITIS
     Dosage: UNK
  13. BONIVA [Concomitant]
     Indication: OSTEOPENIA
     Dosage: UNK
     Dates: start: 20050601
  14. HYDROCHLOROTHIAZIDE [Concomitant]
     Indication: HYPERTENSION
     Dosage: 12.5 MG, UNK
     Route: 048
     Dates: start: 20050601, end: 20070101
  15. HYDROCHLOROTHIAZIDE [Concomitant]
     Dosage: UNK
     Dates: start: 20080601
  16. PROVERA [Concomitant]
     Dosage: UNK
     Dates: start: 19930101, end: 19990101
  17. ADVIL [Concomitant]
     Indication: MIGRAINE
     Dosage: 12 UNK, UNK
     Route: 048
     Dates: start: 19930101, end: 19980101
  18. ADVIL [Concomitant]
     Indication: OSTEOARTHRITIS
     Dosage: 3200 MG, UNK
     Dates: start: 19980101
  19. TYLENOL [Concomitant]
     Indication: OSTEOARTHRITIS
     Dosage: UNK
     Dates: start: 19960101
  20. ELIMITE [Concomitant]
     Indication: ACARODERMATITIS
     Dosage: UNK
     Route: 061
     Dates: start: 19980101
  21. RELAFEN [Concomitant]
     Indication: OSTEOARTHRITIS
  22. RELAFEN [Concomitant]
     Indication: ARTHRALGIA
  23. DAYPRO [Concomitant]
     Indication: OSTEOARTHRITIS
     Dosage: 1200 MG, UNK
     Route: 048
     Dates: start: 19990101
  24. ALEVE [Concomitant]
     Indication: OSTEOARTHRITIS
     Dosage: UNK
     Dates: start: 20050101
  25. CELECOXIB [Concomitant]
     Indication: OSTEOARTHRITIS
     Dosage: UNK
     Dates: start: 20050101
  26. FAMOTIDINE [Concomitant]
     Dosage: UNK
     Dates: start: 20060101
  27. CAPOTEN [Concomitant]
     Indication: HYPERTENSION
     Dosage: 1 DF, 2X/DAY
     Dates: start: 20050224
  28. FOSAMAX [Concomitant]
     Indication: OSTEOPENIA
     Dosage: 70 MG, UNK
     Dates: start: 20050201
  29. VITAMIN D [Concomitant]
     Indication: OSTEOPENIA
     Dosage: 800 MG, UNK
     Dates: start: 20090101
  30. ASCORBIC ACID [Concomitant]
     Dosage: UNK
  31. VITAMIN E [Concomitant]
     Dosage: UNK

REACTIONS (26)
  - ANDROGENETIC ALOPECIA [None]
  - ANXIETY [None]
  - ASTHENIA [None]
  - BALANCE DISORDER [None]
  - BLOOD PRESSURE INCREASED [None]
  - BONE PAIN [None]
  - BREAST CANCER [None]
  - CEREBRAL ISCHAEMIA [None]
  - DEPRESSION [None]
  - ENDOMETRIAL HYPERPLASIA [None]
  - ENDOMETRIAL HYPERTROPHY [None]
  - FALL [None]
  - FATIGUE [None]
  - FIBROCYSTIC BREAST DISEASE [None]
  - HEADACHE [None]
  - HOT FLUSH [None]
  - JOINT SPRAIN [None]
  - MEMORY IMPAIRMENT [None]
  - MENOPAUSE [None]
  - MENORRHAGIA [None]
  - NEUROPATHY PERIPHERAL [None]
  - OSTEOARTHRITIS [None]
  - SCOLIOSIS [None]
  - SPINAL OSTEOARTHRITIS [None]
  - UTERINE POLYP [None]
  - VAGINAL HAEMORRHAGE [None]
